FAERS Safety Report 11260806 (Version 1)
Quarter: 2015Q3

REPORT INFORMATION
  Report Type: Spontaneous
  Country: US (occurrence: US)
  Receive Date: 20150710
  Receipt Date: 20150710
  Transmission Date: 20151125
  Serious: No
  Sender: FDA-Public Use
  Company Number: US-PURDUE-USA-2014-0119526

PATIENT
  Sex: Male

DRUGS (3)
  1. BUTRANS [Suspect]
     Active Substance: BUPRENORPHINE
     Dosage: 15 MCG/HR, UNK
     Route: 062
     Dates: start: 20140830
  2. TYLENOL WITH CODEINE [Concomitant]
     Active Substance: ACETAMINOPHEN\CODEINE PHOSPHATE
     Indication: ROTATOR CUFF SYNDROME
     Dosage: 1 TABLET, QID
  3. BUTRANS [Suspect]
     Active Substance: BUPRENORPHINE
     Indication: SPINAL COLUMN STENOSIS
     Dosage: 10 MCG/HR, WEEKLY
     Route: 062
     Dates: start: 20140419

REACTIONS (9)
  - Restlessness [Unknown]
  - Chills [Unknown]
  - Application site urticaria [Unknown]
  - Pain [Unknown]
  - Muscle twitching [Unknown]
  - Insomnia [Unknown]
  - Abdominal pain [Unknown]
  - Product physical consistency issue [Unknown]
  - Drug withdrawal syndrome [Unknown]

NARRATIVE: CASE EVENT DATE: 20141123
